FAERS Safety Report 4468079-9 (Version None)
Quarter: 2004Q4

REPORT INFORMATION
  Report Type: 
  Country: None (occurrence: None)
  Receive Date: 20041004
  Receipt Date: 20041004
  Transmission Date: 20050328
  Serious: Yes (Other)
  Sender: FDA-Public Use
  Company Number: None

PATIENT
  Age: 62 Year
  Sex: Male
  Weight: 120.2 kg

DRUGS (26)
  1. LAMISIL [Suspect]
  2. CLOPIDOGREL BISULFATE [Concomitant]
  3. HYDROXYZINE PAMOATE [Concomitant]
  4. METOPROLOL SUCCINATE [Concomitant]
  5. HUMULIN N [Concomitant]
  6. ACCU-CHEK COMFORT CURVE-H TEST STRIP [Concomitant]
  7. ISOSORBIDE MONONITRATE [Concomitant]
  8. METFORMIN HCL [Concomitant]
  9. CYANOCOBALAMIN [Concomitant]
  10. TERBINAFINE HYDROCHLORIDE CREAM 1% [Concomitant]
  11. ALBUTEROL / IPRATROP [Concomitant]
  12. ALBUTEROL [Concomitant]
  13. LANCET [Concomitant]
  14. HYDROCORTISONE [Concomitant]
  15. TRIAMCINOLONE [Concomitant]
  16. PREDNISONE [Concomitant]
  17. MELOXICAM [Concomitant]
  18. THEOPHYLLINE (INWOOD) [Concomitant]
  19. TERBINAFINE HYDROCHLORIDE CREAM 1% [Concomitant]
  20. FORMOTEROL FUMARATE [Concomitant]
  21. ASPIRIN [Concomitant]
  22. FOSINOPRIL NA [Concomitant]
  23. NITROGLYCERIN [Concomitant]
  24. TABLET CUTTER [Concomitant]
  25. OFLOXACIN [Concomitant]
  26. TRIAMCINOLONE ACETONIDE [Concomitant]

REACTIONS (2)
  - PYREXIA [None]
  - URTICARIA [None]
